FAERS Safety Report 7004996-3 (Version None)
Quarter: 2010Q3

REPORT INFORMATION
  Report Type: 
  Country: None (occurrence: None)
  Receive Date: 20100920
  Receipt Date: 20100920
  Transmission Date: 20110219
  Serious: Yes (Hospitalization)
  Sender: FDA-Public Use
  Company Number: None

PATIENT
  Age: 60 Year
  Sex: Male
  Weight: 88.905 kg

DRUGS (7)
  1. LEUKINE [Suspect]
     Indication: NEUTROPENIA
     Dosage: 500MCG DAYS 3-13  SQ
     Route: 058
     Dates: start: 20100902, end: 20100909
  2. COLACE [Concomitant]
  3. PEPCID [Concomitant]
  4. CARDIAZEM [Concomitant]
  5. ALLOPURINOL [Concomitant]
  6. ZOFRAN [Concomitant]
  7. NEURONTIN [Concomitant]

REACTIONS (2)
  - PANCYTOPENIA [None]
  - PYREXIA [None]
